FAERS Safety Report 14340132 (Version 8)
Quarter: 2023Q4

REPORT INFORMATION
  Report Type: Report from Study
  Country: DE (occurrence: DE)
  Receive Date: 20171231
  Receipt Date: 20231026
  Transmission Date: 20240110
  Serious: Yes (Hospitalization)
  Sender: FDA-Public Use
  Company Number: DE-ROCHE-1528839

PATIENT
  Age: 81 Year
  Sex: Female
  Weight: 59 kg

DRUGS (9)
  1. LEUCOVORIN [Suspect]
     Active Substance: LEUCOVORIN\LEUCOVORIN CALCIUM
     Indication: Colorectal cancer metastatic
     Dosage: 775 MILLIGRAM DAILY; 775 MG, QD
     Route: 042
     Dates: start: 20140109, end: 20140109
  2. LEUCOVORIN [Suspect]
     Active Substance: LEUCOVORIN\LEUCOVORIN CALCIUM
     Indication: Colorectal cancer
     Dosage: 775 MILLIGRAM DAILY; 775 MG, QD
     Dates: start: 20140109, end: 20140109
  3. CAPECITABINE [Suspect]
     Active Substance: CAPECITABINE
     Indication: Colorectal cancer metastatic
     Dosage: 3000 MG, Q2W
     Route: 048
     Dates: start: 20131011, end: 20131209
  4. FLUOROURACIL [Suspect]
     Active Substance: FLUOROURACIL
     Indication: Colorectal cancer
     Dosage: 4030 MILLIGRAM DAILY; 4030 MG, QD
     Route: 042
     Dates: start: 20140109, end: 20140109
  5. FLUOROURACIL [Suspect]
     Active Substance: FLUOROURACIL
     Indication: Colorectal cancer metastatic
     Dosage: 4030 MILLIGRAM DAILY; 4030 MG, QD
     Dates: start: 20140119, end: 20140119
  6. BEVACIZUMAB [Suspect]
     Active Substance: BEVACIZUMAB
     Indication: Colorectal cancer metastatic
     Dosage: 610 MG,LAST DOSE PRIOR TO SAE: 04/DEC/2013 (ILEUS)
     Route: 042
     Dates: start: 20131011, end: 20131011
  7. BEVACIZUMAB [Suspect]
     Active Substance: BEVACIZUMAB
     Dosage: LAST DOSE PRIOR TO SAE: 04/DEC/2013 (DIZZINESS),610 MG, Q2W (LAST DOSE PRIOR TO SAE: 04/DEC/2013 (IL
     Route: 042
     Dates: start: 20131204, end: 20131204
  8. BEVACIZUMAB [Suspect]
     Active Substance: BEVACIZUMAB
     Dosage: 590 MILLIGRAM DAILY; 590 MG, QD
     Route: 042
     Dates: start: 20140109, end: 20140109
  9. ZOFRAN [Concomitant]
     Active Substance: ONDANSETRON HYDROCHLORIDE
     Indication: Nausea
     Route: 042
     Dates: start: 20140109, end: 20140109

REACTIONS (3)
  - Ileus [Recovered/Resolved]
  - Dizziness [Not Recovered/Not Resolved]
  - Gastrointestinal disorder [Recovered/Resolved]

NARRATIVE: CASE EVENT DATE: 20131209
